FAERS Safety Report 13355161 (Version 1)
Quarter: 2017Q1

REPORT INFORMATION
  Report Type: Spontaneous
  Country: US (occurrence: US)
  Receive Date: 20170321
  Receipt Date: 20170321
  Transmission Date: 20170429
  Serious: No
  Sender: FDA-Public Use
  Company Number: US-BAUSCH-BL-2017-001031

PATIENT
  Age: 72 Year
  Sex: Female
  Weight: 52.66 kg

DRUGS (2)
  1. RETIN-A [Suspect]
     Active Substance: TRETINOIN
     Indication: ACNE
     Dosage: APPLY ONCE NIGHTLY ON THE FACE
     Route: 061
  2. LEVOTHYROXINE. [Concomitant]
     Active Substance: LEVOTHYROXINE
     Indication: HYPOTHYROIDISM

REACTIONS (1)
  - Acne [Not Recovered/Not Resolved]
